FAERS Safety Report 6045459-1 (Version None)
Quarter: 2009Q1

REPORT INFORMATION
  Report Type: 
  Country: None (occurrence: None)
  Receive Date: 20090121
  Receipt Date: 20090112
  Transmission Date: 20090719
  Serious: Yes (Other)
  Sender: FDA-Public Use
  Company Number: SE-ASTRAZENECA-2009SE00321

PATIENT
  Age: 23701 Day
  Sex: Male
  Weight: 102 kg

DRUGS (3)
  1. CRESTOR [Suspect]
     Indication: HYPERLIPIDAEMIA
     Route: 048
     Dates: start: 20080101
  2. SELOKEN ZOC [Concomitant]
     Indication: HYPERTENSION
     Route: 048
     Dates: start: 20050101
  3. TROMBYL [Concomitant]
     Indication: MYOCARDIAL INFARCTION
     Route: 048
     Dates: start: 20080101

REACTIONS (3)
  - HYPOAESTHESIA [None]
  - INSOMNIA [None]
  - MYALGIA [None]
